FAERS Safety Report 9002712 (Version 1)
Quarter: 2013Q1

REPORT INFORMATION
  Report Type: Spontaneous
  Country: US (occurrence: US)
  Receive Date: 20130107
  Receipt Date: 20130107
  Transmission Date: 20140127
  Serious: No
  Sender: FDA-Public Use
  Company Number: US-GLAXOSMITHKLINE-A0992051A

PATIENT
  Sex: Female

DRUGS (18)
  1. BENLYSTA [Suspect]
     Indication: SYSTEMIC LUPUS ERYTHEMATOSUS
     Dosage: 10MGK CYCLIC
     Route: 042
     Dates: start: 2011, end: 201207
  2. LIDODERM PATCH [Concomitant]
  3. PLAQUENIL [Concomitant]
  4. PREDNISONE [Concomitant]
  5. FOLIC ACID [Concomitant]
  6. NEXIUM [Concomitant]
  7. METOPROLOL [Concomitant]
  8. TYLENOL [Concomitant]
  9. VICODIN [Concomitant]
  10. EXCEDRIN [Concomitant]
  11. PHENERGAN [Concomitant]
  12. ALEVE [Concomitant]
  13. BENICAR [Concomitant]
  14. FLEXERIL [Concomitant]
  15. LUTERA [Concomitant]
  16. SKELAXIN [Concomitant]
  17. NUMOISYN [Concomitant]
  18. BACLOFEN [Concomitant]

REACTIONS (5)
  - Influenza like illness [Recovered/Resolved]
  - Chills [Recovered/Resolved]
  - Pain [Recovered/Resolved]
  - Pyrexia [Recovered/Resolved]
  - Arthralgia [Recovered/Resolved]
